FAERS Safety Report 11635202 (Version 1)
Quarter: 2015Q4

REPORT INFORMATION
  Report Type: Spontaneous
  Country: US (occurrence: US)
  Receive Date: 20151015
  Receipt Date: 20151015
  Transmission Date: 20160304
  Serious: No
  Sender: FDA-Public Use
  Company Number: US-SA-2015SA083936

PATIENT
  Age: 54 Year
  Sex: Female

DRUGS (1)
  1. LEMTRADA [Suspect]
     Active Substance: ALEMTUZUMAB
     Indication: MULTIPLE SCLEROSIS
     Route: 041
     Dates: start: 2015

REACTIONS (6)
  - Weight increased [Unknown]
  - Blood pressure diastolic increased [Unknown]
  - Headache [Unknown]
  - Chest discomfort [Recovered/Resolved]
  - Heart rate decreased [Unknown]
  - Oedema [Unknown]

NARRATIVE: CASE EVENT DATE: 201506
